FAERS Safety Report 16688276 (Version 1)
Quarter: 2019Q3

REPORT INFORMATION
  Report Type: Spontaneous
  Country: US (occurrence: US)
  Receive Date: 20190624
  Receipt Date: 20190624
  Transmission Date: 20191004
  Serious: Yes (Life-Threatening, Hospitalization)
  Sender: FDA-Public Use
  Company Number: None

PATIENT
  Age: 47 Year
  Sex: Male
  Weight: 68.04 kg

DRUGS (12)
  1. VELTASSA [Suspect]
     Active Substance: PATIROMER
     Indication: BLOOD POTASSIUM INCREASED
     Dosage: ?          QUANTITY:1 PKG WITH 3OZ WAT;?
     Route: 048
     Dates: start: 20190507, end: 20190515
  2. VITAMIN D2 [Concomitant]
     Active Substance: ERGOCALCIFEROL
  3. METOPROLOL TARTRATE. [Concomitant]
     Active Substance: METOPROLOL TARTRATE
  4. ASPIRIN. [Concomitant]
     Active Substance: ASPIRIN
  5. LISINOPRIL. [Suspect]
     Active Substance: LISINOPRIL
  6. ATORVASTATIN [Concomitant]
     Active Substance: ATORVASTATIN
  7. ALPHA LIPOIC ACID [Concomitant]
     Active Substance: .ALPHA.-LIPOIC ACID
  8. NOVOLOG [Concomitant]
     Active Substance: INSULIN ASPART
  9. GABAPENTIN. [Concomitant]
     Active Substance: GABAPENTIN
  10. TORSEMIDE. [Concomitant]
     Active Substance: TORSEMIDE
  11. AMLODIPINE BESYTATE [Concomitant]
  12. LANTUS SOLOSTAR [Concomitant]
     Active Substance: INSULIN GLARGINE

REACTIONS (8)
  - Blood potassium decreased [None]
  - Blood glucose increased [None]
  - Pharyngeal ulceration [None]
  - Renal impairment [None]
  - Diarrhoea [None]
  - Vomiting [None]
  - Feeding disorder [None]
  - Asthenia [None]

NARRATIVE: CASE EVENT DATE: 20190519
